FAERS Safety Report 19190264 (Version 2)
Quarter: 2021Q2

REPORT INFORMATION
  Report Type: Spontaneous
  Country: IT (occurrence: IT)
  Receive Date: 20210428
  Receipt Date: 20210513
  Transmission Date: 20210717
  Serious: Yes (Hospitalization, Other)
  Sender: FDA-Public Use
  Company Number: IT-PFIZER INC-2021420581

PATIENT
  Age: 47 Year
  Sex: Male
  Weight: 70 kg

DRUGS (3)
  1. ZITROMAX [Suspect]
     Active Substance: AZITHROMYCIN
     Dosage: 1 DF, TOTAL
     Route: 042
     Dates: start: 20210402, end: 20210402
  2. SIRTAP [Suspect]
     Active Substance: CEFTRIAXONE SODIUM
     Dosage: 1 DF, TOTAL
     Route: 042
     Dates: start: 20210402, end: 20210402
  3. LARGACTIL [CHLORPROMAZINE HYDROCHLORIDE] [Suspect]
     Active Substance: CHLORPROMAZINE HYDROCHLORIDE
     Dosage: 1 DF, TOTAL
     Dates: start: 20210308, end: 20210308

REACTIONS (4)
  - Drug-induced liver injury [Not Recovered/Not Resolved]
  - Cholangitis [Not Recovered/Not Resolved]
  - Jaundice cholestatic [Not Recovered/Not Resolved]
  - Pancreatitis [Not Recovered/Not Resolved]

NARRATIVE: CASE EVENT DATE: 20210404
